FAERS Safety Report 24397504 (Version 1)
Quarter: 2024Q4

REPORT INFORMATION
  Report Type: Spontaneous
  Country: DE (occurrence: DE)
  Receive Date: 20241004
  Receipt Date: 20241004
  Transmission Date: 20250115
  Serious: Yes (Hospitalization)
  Sender: TORRENT
  Company Number: None

PATIENT
  Age: 17 Year

DRUGS (2)
  1. RISPERIDONE [Suspect]
     Active Substance: RISPERIDONE
     Indication: Antipsychotic therapy
     Dosage: UNKNOWN
     Route: 065
  2. PIPAMPERONE [Suspect]
     Active Substance: PIPAMPERONE
     Indication: Antipsychotic therapy
     Dosage: UNKNOWN
     Route: 065

REACTIONS (1)
  - Hepatic enzyme increased [Unknown]
